FAERS Safety Report 9224875 (Version 1)
Quarter: 2013Q1

REPORT INFORMATION
  Report Type: Spontaneous
  Country: BE (occurrence: None)
  Receive Date: 20120914
  Receipt Date: 20120914
  Transmission Date: 20140127
  Serious: Yes (Hospitalization, Other)
  Sender: FDA-Public Use
  Company Number: JPI-P-018450

PATIENT
  Age: 37 Year
  Sex: Female

DRUGS (3)
  1. XYREM(500 MILLIGRAM/MILLILITERS, SOLUTION)(SODIUM OXYBATE) [Suspect]
     Indication: CATAPLEXY
     Route: 048
     Dates: start: 20100303
  2. FLUOXETINE [Concomitant]
  3. MODAFINIL [Concomitant]

REACTIONS (4)
  - Intentional overdose [None]
  - Depression [None]
  - Confusional state [None]
  - Somnolence [None]
